FAERS Safety Report 24155152 (Version 3)
Quarter: 2024Q3

REPORT INFORMATION
  Report Type: Report from Study
  Country: BR (occurrence: BR)
  Receive Date: 20240731
  Receipt Date: 20240906
  Transmission Date: 20241017
  Serious: Yes (Other)
  Sender: TAKEDA
  Company Number: BR-TAKEDA-2024TUS049203

PATIENT
  Age: 22 Year
  Sex: Male

DRUGS (2)
  1. VEDOLIZUMAB [Suspect]
     Active Substance: VEDOLIZUMAB
     Indication: Crohn^s disease
     Dosage: 300 MILLIGRAM
     Route: 042
     Dates: start: 20240227
  2. PREDNISONE [Suspect]
     Active Substance: PREDNISONE
     Indication: Erythema nodosum
     Dosage: UNK
     Route: 065
     Dates: start: 20240723

REACTIONS (13)
  - Crohn^s disease [Unknown]
  - Pain [Recovering/Resolving]
  - Diarrhoea [Recovering/Resolving]
  - Malaise [Unknown]
  - Erythema nodosum [Unknown]
  - Proctalgia [Unknown]
  - Vascular access site haematoma [Unknown]
  - Defaecation urgency [Unknown]
  - Heart rate increased [Unknown]
  - Abdominal pain [Unknown]
  - Headache [Not Recovered/Not Resolved]
  - Arthralgia [Unknown]
  - Pain in extremity [Unknown]

NARRATIVE: CASE EVENT DATE: 20240507
